FAERS Safety Report 10245230 (Version 1)
Quarter: 2014Q2

REPORT INFORMATION
  Report Type: Spontaneous
  Country: TH (occurrence: TH)
  Receive Date: 20140618
  Receipt Date: 20140618
  Transmission Date: 20141212
  Serious: Yes (Other)
  Sender: FDA-Public Use
  Company Number: TH-ROCHE-1419799

PATIENT
  Sex: 0

DRUGS (1)
  1. MABTHERA [Suspect]
     Indication: LYMPHOMA
     Route: 065

REACTIONS (1)
  - Acute lung injury [Unknown]
